FAERS Safety Report 5002529-4 (Version None)
Quarter: 2006Q2

REPORT INFORMATION
  Report Type: 
  Country: None (occurrence: None)
  Receive Date: 20060515
  Receipt Date: 20051021
  Transmission Date: 20061013
  Serious: Yes (Death, Hospitalization)
  Sender: FDA-Public Use
  Company Number: US-MERCK-0510USA08740

PATIENT
  Age: 89 Year
  Sex: Male
  Weight: 80 kg

DRUGS (2)
  1. VIOXX [Suspect]
     Route: 048
     Dates: start: 20010501, end: 20040201
  2. ASPIRIN [Concomitant]
     Route: 065

REACTIONS (4)
  - ANXIETY [None]
  - LUNG DISORDER [None]
  - MYOCARDIAL INFARCTION [None]
  - PAIN [None]
